FAERS Safety Report 10501274 (Version 1)
Quarter: 2014Q4

REPORT INFORMATION
  Report Type: Spontaneous
  Country: GB (occurrence: GB)
  Receive Date: 20141007
  Receipt Date: 20141007
  Transmission Date: 20150528
  Serious: Yes (Other)
  Sender: FDA-Public Use
  Company Number: GB-TEVA-511755ISR

PATIENT
  Age: 48 Year
  Sex: Male

DRUGS (5)
  1. METHOTREXATE [Suspect]
     Active Substance: METHOTREXATE
     Indication: CHRONIC SPONTANEOUS URTICARIA
     Dosage: UNK UKN, UNK
  2. NEORAL [Suspect]
     Active Substance: CYCLOSPORINE
     Dosage: UNK
  3. NEORAL [Suspect]
     Active Substance: CYCLOSPORINE
     Indication: URTICARIA
     Dosage: UNK (DOSE REDUCED)
  4. NEORAL [Suspect]
     Active Substance: CYCLOSPORINE
     Dosage: 150 MG DAILY
     Route: 048
     Dates: start: 2008, end: 20140717
  5. DAPSONE. [Suspect]
     Active Substance: DAPSONE
     Indication: CHRONIC SPONTANEOUS URTICARIA
     Dosage: UNK

REACTIONS (4)
  - Blood creatinine increased [Recovered/Resolved]
  - Drug ineffective [Unknown]
  - Urticaria [Unknown]
  - Renal impairment [Unknown]

NARRATIVE: CASE EVENT DATE: 20140717
